FAERS Safety Report 15297736 (Version 5)
Quarter: 2019Q1

REPORT INFORMATION
  Report Type: Report from Study
  Country: ES (occurrence: ES)
  Receive Date: 20180820
  Receipt Date: 20190321
  Transmission Date: 20190417
  Serious: Yes (Other)
  Sender: FDA-Public Use
  Company Number: ES-PFIZER INC-2018111071

PATIENT
  Age: 55 Year
  Sex: Female

DRUGS (7)
  1. AVASTIN [Suspect]
     Active Substance: BEVACIZUMAB
     Dosage: ^1^, EVERY 3 WEEKS
     Route: 042
     Dates: start: 20171126
  2. AVASTIN [Suspect]
     Active Substance: BEVACIZUMAB
     Dosage: 1 DF, EVERY 3 WEEKS
     Route: 042
     Dates: start: 20170912, end: 20171126
  3. ZOMETA [Concomitant]
     Active Substance: ZOLEDRONIC ACID
     Indication: OSTEOPOROSIS
     Dosage: 4 MG, UNK
     Route: 048
     Dates: start: 20170221, end: 20170818
  4. PACLITAXEL. [Suspect]
     Active Substance: PACLITAXEL
     Indication: BREAST CANCER
     Dosage: 90 MG/M2, UNK
     Route: 042
     Dates: start: 20170328, end: 20170911
  5. PACLITAXEL. [Suspect]
     Active Substance: PACLITAXEL
     Dosage: ^1^, WEEKLY
     Route: 042
     Dates: start: 20170911
  6. AVASTIN [Suspect]
     Active Substance: BEVACIZUMAB
     Indication: BREAST CANCER
     Dosage: 590 MG/KG, UNK
     Route: 042
     Dates: start: 20170328, end: 20171124
  7. NEUROTIN [ACETYLCARNITINE HYDROCHLORIDE] [Concomitant]
     Indication: PAIN
     Dosage: 300 MG, UNK
     Route: 048
     Dates: start: 20170322

REACTIONS (25)
  - Neutrophil count decreased [Recovered/Resolved]
  - Neutrophil count decreased [Not Recovered/Not Resolved]
  - Neuralgia [Recovered/Resolved]
  - Proteinuria [Recovered/Resolved]
  - Platelet count decreased [Recovered/Resolved]
  - Chest pain [Recovering/Resolving]
  - Dyspnoea [Recovering/Resolving]
  - Hypertension [Recovered/Resolved]
  - Epistaxis [Recovered/Resolved]
  - Arteriospasm coronary [Not Recovered/Not Resolved]
  - Vasospasm [Recovered/Resolved]
  - Hypertension [Recovered/Resolved]
  - Nausea [Recovered/Resolved]
  - Disease recurrence [Recovered/Resolved]
  - Hypertension [Recovering/Resolving]
  - Sciatica [Recovered/Resolved]
  - Depression [Recovered/Resolved]
  - Alanine aminotransferase increased [Recovering/Resolving]
  - Asthenia [Recovered/Resolved]
  - Diarrhoea [Recovered/Resolved]
  - Aspartate aminotransferase increased [Recovering/Resolving]
  - Polyneuropathy [Recovered/Resolved]
  - Abdominal pain upper [Recovered/Resolved]
  - Toothache [Recovered/Resolved]
  - Pain in extremity [Recovering/Resolving]

NARRATIVE: CASE EVENT DATE: 20170417
